FAERS Safety Report 16060008 (Version 1)
Quarter: 2019Q1

REPORT INFORMATION
  Report Type: Spontaneous
  Country: US (occurrence: US)
  Receive Date: 20190312
  Receipt Date: 20190312
  Transmission Date: 20190418
  Serious: No
  Sender: FDA-Public Use
  Company Number: US-009507513-1903USA003497

PATIENT
  Sex: Female
  Weight: 117.91 kg

DRUGS (1)
  1. PRINIVIL [Suspect]
     Active Substance: LISINOPRIL
     Indication: RENAL DISORDER
     Dosage: 40 MILLIGRAM, ONE TABLET A DAY BY MOUTH
     Route: 048
     Dates: start: 20181016

REACTIONS (1)
  - Product use in unapproved indication [Unknown]
